FAERS Safety Report 18992074 (Version 1)
Quarter: 2021Q1

REPORT INFORMATION
  Report Type: Report from Study
  Country: US (occurrence: US)
  Receive Date: 20210310
  Receipt Date: 20210310
  Transmission Date: 20210420
  Serious: Yes (Death, Hospitalization)
  Sender: FDA-Public Use
  Company Number: US-PFIZER INC-2018128722

PATIENT
  Age: 12 Year
  Sex: Female
  Weight: 38.4 kg

DRUGS (21)
  1. CYTARABINE. [Suspect]
     Active Substance: CYTARABINE
     Dosage: HIGH DOSE ARA C, INTENSIFICATION II CHEMOTHERAPY
     Dates: start: 20100520, end: 20100525
  2. MITOXANTRONE HCL [Suspect]
     Active Substance: MITOXANTRONE HYDROCHLORIDE
     Indication: ACUTE MYELOID LEUKAEMIA
     Dosage: OTAL DOSE THIS COURSE WAS 60 MG
     Dates: start: 20100522, end: 20100526
  3. AMICAN [Concomitant]
  4. LASIX [Concomitant]
     Active Substance: FUROSEMIDE
  5. DAUNORUBICIN [Suspect]
     Active Substance: DAUNORUBICIN
     Indication: ACUTE MYELOID LEUKAEMIA
     Dosage: TOTAL DOSE ADMINISTERED THIS COURSE WAS 402 MG
     Dates: start: 20100202, end: 20100309
  6. INSULIN [Concomitant]
     Active Substance: INSULIN NOS
  7. SODIUM BICARBONATE. [Concomitant]
     Active Substance: SODIUM BICARBONATE
  8. CALCIUM CHLORIDE. [Concomitant]
     Active Substance: CALCIUM CHLORIDE
  9. HEPARIN [Concomitant]
     Active Substance: HEPARIN SODIUM
  10. MILRINONE [Concomitant]
     Active Substance: MILRINONE
  11. MORPHINE [Concomitant]
     Active Substance: MORPHINE
  12. POTASSIUM [Concomitant]
     Active Substance: POTASSIUM
  13. MITOXANTRONE HCL [Suspect]
     Active Substance: MITOXANTRONE HYDROCHLORIDE
     Dosage: 48 MG/M2, INTENSIFICATION II CHEMOTHERAPY
     Dates: start: 20100520, end: 20100525
  14. DOBUTAMINE [Concomitant]
     Active Substance: DOBUTAMINE HYDROCHLORIDE
  15. VASOPRESSIN. [Concomitant]
     Active Substance: VASOPRESSIN
  16. CYTARABINE. [Suspect]
     Active Substance: CYTARABINE
     Indication: ACUTE MYELOID LEUKAEMIA
     Dosage: TOTAL DOSE ADMINISTERED THIS COURSE WAS 28468 MG
     Dates: start: 20100202, end: 20100524
  17. VP?16 [Suspect]
     Active Substance: ETOPOSIDE
     Indication: ACUTE MYELOID LEUKAEMIA
     Dosage: TOTAL DOSE ADMINISTERED THIS COURSE WAS 2325 MG
     Dates: start: 20100202, end: 20100412
  18. ATIVAN [Concomitant]
     Active Substance: LORAZEPAM
  19. EPINEPHRINE. [Concomitant]
     Active Substance: EPINEPHRINE
  20. FENTANYL. [Concomitant]
     Active Substance: FENTANYL
  21. VERSED [Concomitant]
     Active Substance: MIDAZOLAM HYDROCHLORIDE

REACTIONS (3)
  - Cardiogenic shock [Fatal]
  - Arrhythmia [Fatal]
  - Cardiac failure [Fatal]

NARRATIVE: CASE EVENT DATE: 20100821
